FAERS Safety Report 8374056-8 (Version None)
Quarter: 2012Q2

REPORT INFORMATION
  Report Type: 
  Country: None (occurrence: None)
  Receive Date: 20120518
  Receipt Date: 20120518
  Transmission Date: 20120825
  Serious: Yes (Disabling)
  Sender: FDA-Public Use
  Company Number: None

PATIENT
  Sex: Male
  Weight: 40.3701 kg

DRUGS (1)
  1. SPORANOX [Suspect]
     Indication: FUNGAL INFECTION
     Dosage: 10MG (SUSPENSION) 2X PER DAY ORAL
     Route: 048
     Dates: start: 20050101, end: 20120101

REACTIONS (4)
  - OSTEOPOROSIS [None]
  - BONE DENSITY DECREASED [None]
  - FALL [None]
  - SPINAL COMPRESSION FRACTURE [None]
